FAERS Safety Report 13062592 (Version 1)
Quarter: 2016Q4

REPORT INFORMATION
  Report Type: Spontaneous
  Country: US (occurrence: US)
  Receive Date: 20161226
  Receipt Date: 20161226
  Transmission Date: 20170207
  Serious: Yes (Other)
  Sender: FDA-Public Use
  Company Number: PHHY2016US175288

PATIENT
  Sex: Female

DRUGS (1)
  1. METHOTREXATE. [Suspect]
     Active Substance: METHOTREXATE
     Indication: ABORTION INDUCED
     Route: 065

REACTIONS (2)
  - Premature labour [Unknown]
  - Maternal exposure during pregnancy [Unknown]
